FAERS Safety Report 8460465-5 (Version None)
Quarter: 2012Q2

REPORT INFORMATION
  Report Type: 
  Country: None (occurrence: None)
  Receive Date: 20120622
  Receipt Date: 20120611
  Transmission Date: 20120825
  Serious: Yes (Other)
  Sender: FDA-Public Use
  Company Number: ES-CELGENEUS-144-21880-12061424

PATIENT
  Age: 50 Year
  Sex: Male

DRUGS (2)
  1. REVLIMID [Suspect]
     Indication: MULTIPLE MYELOMA
     Route: 048
     Dates: start: 20080601, end: 20111201
  2. DEXAMETHASONE [Concomitant]
     Route: 065

REACTIONS (5)
  - ERECTILE DYSFUNCTION [None]
  - PANCYTOPENIA [None]
  - CUSHING'S SYNDROME [None]
  - ADVERSE EVENT [None]
  - TOXICITY TO VARIOUS AGENTS [None]
